FAERS Safety Report 7866493-2 (Version None)
Quarter: 2011Q4

REPORT INFORMATION
  Report Type: 
  Country: None (occurrence: None)
  Receive Date: 20111028
  Receipt Date: 20111018
  Transmission Date: 20120403
  Serious: Yes (Hospitalization)
  Sender: FDA-Public Use
  Company Number: DE-PFIZER INC-2011225914

PATIENT
  Age: 70 Year
  Sex: Female
  Weight: 64 kg

DRUGS (16)
  1. DIGITOXIN [Concomitant]
     Indication: ATRIAL FIBRILLATION
     Dosage: .07 MG, 1X/DAY; ONCE DAILY FROM MONDAY TO SUNDAY
     Route: 048
     Dates: start: 20100101
  2. PANTOPRAZOLE [Concomitant]
     Indication: GASTRIC DISORDER
     Dosage: 40 MG, 1X/DAY
     Route: 048
     Dates: start: 20070101
  3. VERAPAMIL [Concomitant]
     Indication: BLOOD PRESSURE INCREASED
     Dosage: 40 MG, AS REQUIRED
     Route: 048
     Dates: start: 20070101
  4. MIXTARD HUMAN 70/30 [Concomitant]
     Indication: TYPE 2 DIABETES MELLITUS
     Dosage: 30/70 (100 IU, 3X/DAY)
     Route: 058
     Dates: start: 20080101
  5. PREGABALIN [Suspect]
     Indication: PAIN
     Dosage: 75 MG, 2X/DAY
     Route: 048
     Dates: start: 20110829, end: 20110901
  6. TIOTROPIUM BROMIDE [Concomitant]
     Indication: ASTHMA
     Dosage: 18 MCG, 1X/DAY
     Route: 055
     Dates: start: 20070101
  7. LEKOVIT CA [Concomitant]
     Indication: PROPHYLAXIS
     Dosage: 1 TAB, 1X/DAY
     Route: 048
     Dates: start: 20080101
  8. PARACETAMOL [Concomitant]
     Dosage: 500 MG
  9. LEVOTHYROXINE [Concomitant]
     Indication: HYPOTHYROIDISM
     Dosage: 75 MCG, 1X/DAY
     Route: 048
     Dates: start: 19810101
  10. GABAPENTIN [Concomitant]
     Indication: POLYNEUROPATHY
     Dosage: 300 MG, 2X/DAY
     Route: 048
     Dates: start: 20100201, end: 20110818
  11. MAGNESIUM [Concomitant]
     Indication: PROPHYLAXIS
     Dosage: 300 MG, 1X/DAY
     Route: 048
     Dates: start: 20080101
  12. TORASEMIDE [Concomitant]
     Indication: BLOOD PRESSURE INCREASED
     Dosage: 5 MG, 1X/DAY
     Route: 048
     Dates: start: 20090101
  13. ACETYLSALICYLIC ACID [Concomitant]
     Indication: PROPHYLAXIS
     Dosage: 100 MG, 1X/DAY
     Route: 048
     Dates: start: 20070101
  14. BUDESONIDE/FORMOTEROL FUMARATE [Concomitant]
     Indication: ASTHMA
     Dosage: 640 MCG, 2X/DAY
     Route: 055
     Dates: start: 20010101
  15. DUOVENT [Concomitant]
     Indication: ASTHMA
     Dosage: 50 MCG, AS NEEDED
     Route: 055
     Dates: start: 20010101
  16. ZINK [Concomitant]
     Indication: PROPHYLAXIS
     Dosage: 10 MG, 1X/DAY
     Route: 048
     Dates: start: 20080101

REACTIONS (3)
  - URTICARIA [None]
  - RENAL FAILURE [None]
  - MYOCARDIAL INFARCTION [None]
